FAERS Safety Report 24290281 (Version 3)
Quarter: 2024Q4

REPORT INFORMATION
  Report Type: Spontaneous
  Country: US (occurrence: US)
  Receive Date: 20240906
  Receipt Date: 20241113
  Transmission Date: 20250115
  Serious: No
  Sender: BIOVITRUM
  Company Number: US-BIOVITRUM-2024-US-010700

PATIENT
  Age: 86 Year
  Sex: Female

DRUGS (1)
  1. VONJO [Suspect]
     Active Substance: PACRITINIB
     Indication: Myelofibrosis
     Dosage: TWICE DAILY
     Route: 048
     Dates: start: 20240718

REACTIONS (5)
  - Somnolence [Unknown]
  - Fatigue [Unknown]
  - Pruritus [Unknown]
  - Off label use [Not Recovered/Not Resolved]
  - Cognitive disorder [Unknown]

NARRATIVE: CASE EVENT DATE: 20240718
